FAERS Safety Report 14972527 (Version 1)
Quarter: 2018Q2

REPORT INFORMATION
  Report Type: Spontaneous
  Country: CN (occurrence: CN)
  Receive Date: 20180605
  Receipt Date: 20180605
  Transmission Date: 20180711
  Serious: Yes (Other)
  Sender: FDA-Public Use
  Company Number: CN-009507513-1806CHN000967

PATIENT
  Age: 80 Year
  Sex: Male

DRUGS (1)
  1. TIENAM [Suspect]
     Active Substance: CILASTATIN SODIUM\IMIPENEM
     Indication: PNEUMONITIS
     Dosage: 500 MG, TID
     Route: 041
     Dates: start: 20180322, end: 20180323

REACTIONS (2)
  - Memory impairment [Recovered/Resolved]
  - Language disorder [Recovered/Resolved]

NARRATIVE: CASE EVENT DATE: 20180322
